FAERS Safety Report 24954007 (Version 1)
Quarter: 2025Q1

REPORT INFORMATION
  Report Type: Spontaneous
  Country: US (occurrence: US)
  Receive Date: 20250211
  Receipt Date: 20250211
  Transmission Date: 20250409
  Serious: Yes (Other)
  Sender: TEVA
  Company Number: US-TEVA-VS-3295006

PATIENT
  Age: 25 Year
  Sex: Male

DRUGS (1)
  1. CLARAVIS [Suspect]
     Active Substance: ISOTRETINOIN
     Indication: Product used for unknown indication
     Route: 065

REACTIONS (9)
  - Anxiety [Unknown]
  - Noninfective encephalitis [Unknown]
  - Dizziness [Unknown]
  - Gastrointestinal disorder [Unknown]
  - Vision blurred [Unknown]
  - Head discomfort [Unknown]
  - Cerebral disorder [Unknown]
  - Impaired work ability [Unknown]
  - Overgrowth fungal [Unknown]
